FAERS Safety Report 16709893 (Version 1)
Quarter: 2019Q4

REPORT INFORMATION
  Report Type: Spontaneous
  Country: US (occurrence: US)
  Receive Date: 20190815
  Receipt Date: 20190815
  Transmission Date: 20200122
  Serious: No
  Sender: FDA-Public Use
  Company Number: None

PATIENT
  Age: 38 Year
  Sex: Female

DRUGS (7)
  1. PROGESTRONE [Concomitant]
     Dates: start: 20190626
  2. LEUPROLIDE [Concomitant]
     Active Substance: LEUPROLIDE
     Dates: start: 20190524
  3. HCG [Concomitant]
     Active Substance: GONADOTROPHIN, CHORIONIC
     Dates: start: 20190626
  4. NOVAREL [Suspect]
     Active Substance: CHORIOGONADOTROPIN ALFA
     Indication: INFERTILITY
     Route: 058
     Dates: start: 20190626
  5. GANIRELIX [Suspect]
     Active Substance: GANIRELIX
     Indication: INFERTILITY
     Route: 058
     Dates: start: 20190626
  6. ENDOMETRIN [Concomitant]
     Active Substance: PROGESTERONE
     Dates: start: 20190626
  7. DOXYCYCLINE. [Concomitant]
     Active Substance: DOXYCYCLINE
     Dates: start: 20190524

REACTIONS (1)
  - Dizziness [None]

NARRATIVE: CASE EVENT DATE: 20190814
